FAERS Safety Report 7512293-2 (Version None)
Quarter: 2011Q2

REPORT INFORMATION
  Report Type: 
  Country: None (occurrence: None)
  Receive Date: 20110525
  Receipt Date: 20110525
  Transmission Date: 20111010
  Serious: Yes (Other)
  Sender: FDA-Public Use
  Company Number: None

PATIENT
  Age: 59 Year
  Sex: Female
  Weight: 71.4 kg

DRUGS (1)
  1. PLAVIX [Suspect]
     Indication: ANTICOAGULANT THERAPY
     Dosage: 75MG 1 DAILY
     Dates: start: 20100201, end: 20110501

REACTIONS (3)
  - PAIN [None]
  - HYPERKERATOSIS [None]
  - CONTUSION [None]
